FAERS Safety Report 7669581-9 (Version None)
Quarter: 2011Q3

REPORT INFORMATION
  Report Type: 
  Country: None (occurrence: None)
  Receive Date: 20110808
  Receipt Date: 20110728
  Transmission Date: 20111222
  Serious: Yes (Other)
  Sender: FDA-Public Use
  Company Number: US-JNJFOC-20110800571

PATIENT
  Sex: Female
  Weight: 68.49 kg

DRUGS (5)
  1. REMICADE [Suspect]
     Route: 042
     Dates: start: 20011026
  2. ACETAMINOPHEN [Concomitant]
     Indication: PREMEDICATION
  3. REMICADE [Suspect]
     Route: 042
     Dates: start: 20101221
  4. REMICADE [Suspect]
     Indication: CROHN'S DISEASE
     Dosage: 6 INFLIXIMAB INFUSION PRIOR TO TREAT REGISTRY. 59 INFUSION TOTAL AFTER TREAT REGISTRY.
     Route: 042
  5. ANTIHISTAMINES [Concomitant]
     Indication: PREMEDICATION

REACTIONS (1)
  - BASAL CELL CARCINOMA [None]
